FAERS Safety Report 7797495-2 (Version None)
Quarter: 2011Q4

REPORT INFORMATION
  Report Type: 
  Country: None (occurrence: None)
  Receive Date: 20111004
  Receipt Date: 20111004
  Transmission Date: 20120403
  Serious: No
  Sender: FDA-Public Use
  Company Number: None

PATIENT
  Sex: Female
  Weight: 66.8 kg

DRUGS (2)
  1. CISPLATIN [Suspect]
     Dosage: 128 MG
     Dates: end: 20110921
  2. TAXOL [Suspect]
     Dosage: 20 MG
     Dates: end: 20110920

REACTIONS (5)
  - DEHYDRATION [None]
  - ATELECTASIS [None]
  - ABDOMINAL PAIN [None]
  - BLOOD PRESSURE DECREASED [None]
  - PYREXIA [None]
